FAERS Safety Report 18124768 (Version 2)
Quarter: 2020Q3

REPORT INFORMATION
  Report Type: Spontaneous
  Country: GB (occurrence: GB)
  Receive Date: 20200807
  Receipt Date: 20200904
  Transmission Date: 20201103
  Serious: Yes (Other)
  Sender: FDA-Public Use
  Company Number: GB-ASCEND THERAPEUTICS US, LLC-2088296

PATIENT
  Age: 57 Year
  Sex: Female
  Weight: 69 kg

DRUGS (4)
  1. ESTROGEL [Suspect]
     Active Substance: ESTRADIOL
     Indication: MENOPAUSE
     Route: 050
     Dates: start: 20200608, end: 20200629
  2. OESTRODOSE (ESTRADIOL)?INDICATION FOR USE: MENOPAUSE [Suspect]
     Active Substance: ESTRADIOL
     Route: 050
     Dates: start: 20200608, end: 20200629
  3. OESTROGEL (ESTRADIOL), UNKNOWN [Concomitant]
     Active Substance: ESTRADIOL
  4. ESTROGEL [Suspect]
     Active Substance: ESTRADIOL

REACTIONS (10)
  - Drug ineffective [Unknown]
  - Anxiety [Recovering/Resolving]
  - Menopausal symptoms [Unknown]
  - Product physical consistency issue [Unknown]
  - Product substitution issue [Unknown]
  - Product quality issue [Unknown]
  - Fatigue [Recovered/Resolved]
  - Irritability [Recovering/Resolving]
  - Hot flush [Recovering/Resolving]
  - Migraine [Unknown]

NARRATIVE: CASE EVENT DATE: 20200610
